FAERS Safety Report 7663044-2 (Version None)
Quarter: 2011Q3

REPORT INFORMATION
  Report Type: 
  Country: None (occurrence: None)
  Receive Date: 20110805
  Receipt Date: 20101006
  Transmission Date: 20111222
  Serious: No
  Sender: FDA-Public Use
  Company Number: US-ABBOTT-10P-163-0670912-00

PATIENT
  Sex: Male
  Weight: 77.18 kg

DRUGS (10)
  1. NIASPAN [Suspect]
     Indication: BLOOD CHOLESTEROL INCREASED
     Route: 048
     Dates: start: 20100701, end: 20100901
  2. AMLODIPINE [Concomitant]
     Indication: HYPERTENSION
  3. FUROSEMIDE [Concomitant]
     Indication: PRODUCT USED FOR UNKNOWN INDICATION
  4. SIMVASTATIN [Concomitant]
     Indication: BLOOD CHOLESTEROL
  5. HYDROXYUREA [Concomitant]
     Indication: POLYCYTHAEMIA
     Dosage: DOSE VARIES
  6. METOPROLOL TARTRATE [Concomitant]
     Indication: HYPERTENSION
  7. PLAVIX [Concomitant]
     Indication: PRODUCT USED FOR UNKNOWN INDICATION
  8. DIGOXIN [Concomitant]
     Indication: PRODUCT USED FOR UNKNOWN INDICATION
  9. OMEPRAZOLE [Concomitant]
     Indication: GASTROOESOPHAGEAL REFLUX DISEASE
  10. POTASSIUM [Concomitant]
     Indication: PRODUCT USED FOR UNKNOWN INDICATION

REACTIONS (2)
  - RASH PRURITIC [None]
  - FLUSHING [None]
